FAERS Safety Report 8823170 (Version 5)
Quarter: 2013Q1

REPORT INFORMATION
  Report Type: Spontaneous
  Country: US (occurrence: US)
  Receive Date: 20121003
  Receipt Date: 20130314
  Transmission Date: 20140127
  Serious: Yes (Other)
  Sender: FDA-Public Use
  Company Number: US-PFIZER INC-2012244525

PATIENT
  Sex: Female

DRUGS (6)
  1. LYRICA [Suspect]
     Indication: FIBROMYALGIA
     Dosage: UNK
  2. LYRICA [Suspect]
     Dosage: 200 MG DAILY
  3. TOPROL XL [Concomitant]
     Indication: BLOOD PRESSURE ABNORMAL
     Dosage: 50 MG, 1X/DAY
  4. CELEBREX [Concomitant]
     Indication: ARTHRITIS
     Dosage: 100 MG, 1X/DAY
  5. ACCUPRIL [Concomitant]
     Indication: RENAL DISORDER
     Dosage: 5 MG, 1X/DAY
  6. HYDROCHLOROTHIAZIDE [Concomitant]
     Indication: BLOOD PRESSURE ABNORMAL
     Dosage: 25 MG, 1X/DAY

REACTIONS (1)
  - Thyroid disorder [Not Recovered/Not Resolved]
